FAERS Safety Report 14331884 (Version 1)
Quarter: 2017Q4

REPORT INFORMATION
  Report Type: Spontaneous
  Country: US (occurrence: US)
  Receive Date: 20171228
  Receipt Date: 20171228
  Transmission Date: 20180321
  Serious: No
  Sender: FDA-Public Use
  Company Number: US-009507513-1712USA003734

PATIENT
  Age: 45 Year
  Sex: Female

DRUGS (6)
  1. TEMODAR [Suspect]
     Active Substance: TEMOZOLOMIDE
     Indication: SMALL CELL CARCINOMA
     Dosage: UNK
     Route: 048
  2. TEMODAR [Suspect]
     Active Substance: TEMOZOLOMIDE
     Indication: URINARY TRACT CARCINOMA IN SITU
  3. CAPECITABINE. [Concomitant]
     Active Substance: CAPECITABINE
     Indication: URINARY TRACT CARCINOMA IN SITU
  4. OCTREOTIDE. [Concomitant]
     Active Substance: OCTREOTIDE
     Indication: SMALL CELL CARCINOMA
     Dosage: UNK
  5. CAPECITABINE. [Concomitant]
     Active Substance: CAPECITABINE
     Indication: SMALL CELL CARCINOMA
     Dosage: UNK
  6. OCTREOTIDE. [Concomitant]
     Active Substance: OCTREOTIDE
     Indication: URINARY TRACT CARCINOMA IN SITU

REACTIONS (1)
  - Off label use [Unknown]
